APPROVED DRUG PRODUCT: THIAMINE HYDROCHLORIDE
Active Ingredient: THIAMINE HYDROCHLORIDE
Strength: 100MG/ML
Dosage Form/Route: INJECTABLE;INJECTION
Application: A040079 | Product #001
Applicant: HOSPIRA WORLDWIDE, INC
Approved: May 3, 1996 | RLD: No | RS: No | Type: DISCN